FAERS Safety Report 11143258 (Version 3)
Quarter: 2015Q4

REPORT INFORMATION
  Report Type: Spontaneous
  Country: IT (occurrence: IT)
  Receive Date: 20150526
  Receipt Date: 20151204
  Transmission Date: 20160304
  Serious: Yes (Hospitalization)
  Sender: FDA-Public Use
  Company Number: IT-ROCHE-1581725

PATIENT
  Age: 36 Year
  Sex: Female

DRUGS (6)
  1. VALIUM [Suspect]
     Active Substance: DIAZEPAM
     Dosage: 50 DROPS PER DAY
     Route: 048
     Dates: start: 20150520
  2. TALOFEN [Suspect]
     Active Substance: PROMAZINE HYDROCHLORIDE
     Dosage: 50 DROPS PER DAY
     Route: 048
     Dates: start: 20150520
  3. TALOFEN [Suspect]
     Active Substance: PROMAZINE HYDROCHLORIDE
     Indication: INSOMNIA
     Dosage: ^4 G/100 ML ORAL DROPS, SOLUTION^ 30 ML BOTTLE
     Route: 048
     Dates: start: 20150414, end: 20150414
  4. VALIUM [Suspect]
     Active Substance: DIAZEPAM
     Indication: ANXIETY
     Dosage: 5 MG/ML ORAL DROPS, SOLUTION^ 20 ML BOTTLE
     Route: 048
     Dates: start: 20150414, end: 20150414
  5. SEROQUEL [Suspect]
     Active Substance: QUETIAPINE FUMARATE
     Dosage: 2 TABLETS/DAY
     Route: 048
     Dates: start: 20150520
  6. SEROQUEL [Suspect]
     Active Substance: QUETIAPINE FUMARATE
     Indication: AGITATION
     Dosage: 400 MG PROLONGED RELEASE TABLETS^ 60 TABLETS
     Route: 048
     Dates: start: 20150414, end: 20150414

REACTIONS (2)
  - Sopor [Recovered/Resolved]
  - Drug abuse [Unknown]

NARRATIVE: CASE EVENT DATE: 20150414
